FAERS Safety Report 21363966 (Version 1)
Quarter: 2022Q3

REPORT INFORMATION
  Report Type: Spontaneous
  Country: US (occurrence: None)
  Receive Date: 20220921
  Receipt Date: 20220921
  Transmission Date: 20221027
  Serious: No
  Sender: FDA-Public Use
  Company Number: None

PATIENT
  Age: 76 Year
  Sex: Female
  Weight: 53.1 kg

DRUGS (10)
  1. NITROFURANTOIN [Suspect]
     Active Substance: NITROFURANTOIN
     Indication: Urinary tract infection
     Dosage: OTHER QUANTITY : 1 CAPSULE(S);?FREQUENCY : TWICE A DAY;?
     Route: 048
  2. LEVOTHYROXIN [Concomitant]
  3. AMLODIPINE [Concomitant]
  4. MONTELUKAST [Concomitant]
  5. Metoprolol Suc [Concomitant]
  6. SPIRONOLACTONE [Concomitant]
     Active Substance: SPIRONOLACTONE
  7. Shaklee multi vitamins [Concomitant]
  8. Shaklee Osteomatrix [Concomitant]
  9. Shaklee Vitamin D3 [Concomitant]
  10. K complex Probiotics [Concomitant]

REACTIONS (3)
  - Thirst [None]
  - Chills [None]
  - Fatigue [None]

NARRATIVE: CASE EVENT DATE: 20220915
